FAERS Safety Report 4743415-4 (Version None)
Quarter: 2005Q3

REPORT INFORMATION
  Report Type: 
  Country: None (occurrence: None)
  Receive Date: 20050812
  Receipt Date: 20050726
  Transmission Date: 20060218
  Serious: Yes (Life-Threatening, Hospitalization)
  Sender: FDA-Public Use
  Company Number: US-BOEHRINGER INGELHEIM PHARMACEUTICALS, INC.-2005-BP-12695BP

PATIENT
  Age: 74 Year
  Sex: Female

DRUGS (13)
  1. MOBIC [Suspect]
     Indication: OSTEOARTHRITIS
     Dosage: ONE TWICE A DAY
     Route: 048
     Dates: start: 20050624, end: 20050626
  2. MEPROBAMATE [Concomitant]
     Dosage: 1 TAB BY MOUTH TWICE A DAY
     Route: 048
  3. NEURONTIN [Concomitant]
     Dosage: 1 TABLET BY MOUTH TWICE A DAY.
     Route: 048
  4. COD LIVER OIL CAP [Concomitant]
     Dosage: QD
  5. MULTI-VITAMINS [Concomitant]
     Dosage: QD
  6. CALCIUM VITAMIN D TABS [Concomitant]
     Dosage: 500-200 MG-IU QD
  7. TYLENOL (CAPLET) [Concomitant]
     Dosage: 1 TAB 4XDAY
  8. DIPROLENE AF [Concomitant]
     Dosage: 0.5% CREA
  9. GLUCOSOMINE-CHONDROITIN [Concomitant]
     Dosage: 500-400 MG CAP, ONE BY MOUTH DAILY
     Route: 048
  10. LOTRISONE [Concomitant]
     Dosage: 1-0.05% CREAM, APPLY TWICE A DAY TO AFFECTED AREA TILL CLEAR
  11. NICODERM CQ [Concomitant]
     Dosage: ONE DAILY ON IN AM OFF IN PM
  12. NICODERM CQ [Concomitant]
     Dosage: ONE DAILY ON IN AM OFF IN PM
  13. FLU SHOT [Concomitant]

REACTIONS (4)
  - ASTHENIA [None]
  - GASTRIC ULCER [None]
  - GASTROINTESTINAL HAEMORRHAGE [None]
  - HAEMATEMESIS [None]
